FAERS Safety Report 23626190 (Version 1)
Quarter: 2024Q1

REPORT INFORMATION
  Report Type: Spontaneous
  Country: US (occurrence: US)
  Receive Date: 20240313
  Receipt Date: 20240313
  Transmission Date: 20240410
  Serious: Yes (Hospitalization)
  Sender: FDA-Public Use
  Company Number: US-Yung Shin Pharmaceutical Ind.  Co., Ltd.-2154297

PATIENT
  Age: 50 Year
  Sex: Male

DRUGS (3)
  1. CLONIDINE HYDROCHLORIDE [Suspect]
     Active Substance: CLONIDINE HYDROCHLORIDE
     Route: 065
  2. OLANZAPINE [Suspect]
     Active Substance: OLANZAPINE
     Route: 065
  3. LORAZEPAM [Concomitant]
     Active Substance: LORAZEPAM
     Route: 065

REACTIONS (4)
  - Mental status changes [Not Recovered/Not Resolved]
  - Overdose [Unknown]
  - Drug abuse [Unknown]
  - Off label use [Unknown]
